FAERS Safety Report 8403092-8 (Version None)
Quarter: 2012Q2

REPORT INFORMATION
  Report Type: 
  Country: None (occurrence: None)
  Receive Date: 20120601
  Receipt Date: 20120525
  Transmission Date: 20120825
  Serious: Yes (Hospitalization)
  Sender: FDA-Public Use
  Company Number: KR-ABBOTT-10P-090-0656066-00

PATIENT
  Age: 47 Year
  Sex: Male
  Weight: 44 kg

DRUGS (12)
  1. KALETRA [Suspect]
     Indication: PRODUCT USED FOR UNKNOWN INDICATION
     Dates: start: 20100614
  2. DAEWOO FOLIC ACID [Concomitant]
     Indication: ANAEMIA MEGALOBLASTIC
     Dosage: 1MG DAILY
     Route: 048
     Dates: start: 20100625
  3. ABC [Concomitant]
     Indication: ANTIRETROVIRAL THERAPY
     Dosage: 800MG DAILY
     Dates: start: 20100614
  4. TAEKUK DAPSONE [Concomitant]
     Indication: PROPHYLAXIS
     Dosage: 100MG DAILY
     Route: 048
     Dates: start: 20100625
  5. LAMIVUDINE (EPIVIR HBV) [Concomitant]
     Indication: ANTIRETROVIRAL THERAPY
     Dosage: 300MG DAILY
     Route: 048
     Dates: start: 20100614
  6. TAEKUK DAPSONE [Concomitant]
     Indication: PNEUMOCYSTIS JIROVECI PNEUMONIA
  7. MACPERAN [Concomitant]
     Indication: PROPHYLAXIS OF NAUSEA AND VOMITING
     Dosage: 3 TABLETS DAILY
     Route: 048
     Dates: start: 20100614, end: 20100621
  8. MECOBALAMIN [Concomitant]
     Indication: ANAEMIA MEGALOBLASTIC
     Dates: start: 20100625
  9. SULFMETHOXAZOL, TRIMETHOPRIM [Concomitant]
     Indication: PNEUMOCYSTIS JIROVECI PNEUMONIA
  10. SULFMETHOXAZOL, TRIMETHOPRIM [Concomitant]
     Indication: PROPHYLAXIS
     Dates: start: 20100614, end: 20100624
  11. MEGACE [Concomitant]
     Indication: HIV WASTING SYNDROME
     Dosage: 40MG/240ML
     Route: 048
     Dates: start: 20100621
  12. MEGACE [Concomitant]
     Indication: DECREASED APPETITE

REACTIONS (11)
  - OEDEMA PERIPHERAL [None]
  - PNEUMONIA [None]
  - HYPONATRAEMIA [None]
  - ANAEMIA MEGALOBLASTIC [None]
  - HYPOPROTEINAEMIA [None]
  - FOLATE DEFICIENCY [None]
  - HYPERKALAEMIA [None]
  - DEHYDRATION [None]
  - ORAL CANDIDIASIS [None]
  - NEUROPATHY PERIPHERAL [None]
  - HEADACHE [None]
